FAERS Safety Report 16406557 (Version 1)
Quarter: 2019Q2

REPORT INFORMATION
  Report Type: Spontaneous
  Country: DE (occurrence: DE)
  Receive Date: 20190607
  Receipt Date: 20190607
  Transmission Date: 20190711
  Serious: Yes (Hospitalization, Other)
  Sender: FDA-Public Use
  Company Number: DE-WHANIN PHARM. CO., LTD.-2019M1053582

PATIENT
  Age: 21 Year
  Sex: Male

DRUGS (1)
  1. LEPONEX [Suspect]
     Active Substance: CLOZAPINE
     Indication: SCHIZOPHRENIA
     Dosage: UNK
     Route: 048
     Dates: start: 20040930, end: 20041015

REACTIONS (6)
  - Echocardiogram abnormal [Recovered/Resolved]
  - Pyrexia [Recovered/Resolved]
  - Leukocytosis [Recovered/Resolved]
  - Asthenia [Recovered/Resolved]
  - Myocarditis [Recovered/Resolved]
  - Troponin T increased [Recovered/Resolved]

NARRATIVE: CASE EVENT DATE: 200410
